FAERS Safety Report 13847531 (Version 1)
Quarter: 2017Q3

REPORT INFORMATION
  Report Type: Report from Study
  Country: CO (occurrence: CO)
  Receive Date: 20170809
  Receipt Date: 20170809
  Transmission Date: 20171127
  Serious: Yes (Other)
  Sender: FDA-Public Use
  Company Number: PHHY2017CO115607

PATIENT
  Age: 38 Year
  Sex: Female
  Weight: 98 kg

DRUGS (1)
  1. SIGNIFOR [Suspect]
     Active Substance: PASIREOTIDE
     Indication: CUSHING^S SYNDROME
     Dosage: 0.3 MG, BID
     Route: 058
     Dates: start: 20170413

REACTIONS (3)
  - Lower limb fracture [Unknown]
  - Gait disturbance [Unknown]
  - Accident [Unknown]

NARRATIVE: CASE EVENT DATE: 20170415
